FAERS Safety Report 11329572 (Version 4)
Quarter: 2016Q1

REPORT INFORMATION
  Report Type: Report from Study
  Country: US (occurrence: US)
  Receive Date: 20150803
  Receipt Date: 20160208
  Transmission Date: 20160525
  Serious: Yes (Hospitalization, Other)
  Sender: FDA-Public Use
  Company Number: US-AMGEN-USASL2015076244

PATIENT
  Age: 46 Year
  Sex: Male

DRUGS (2)
  1. ENBREL [Suspect]
     Active Substance: ETANERCEPT
     Indication: PSORIATIC ARTHROPATHY
     Dosage: 50 UNK, QWK
     Route: 065
     Dates: end: 20160111
  2. ENBREL [Suspect]
     Active Substance: ETANERCEPT
     Indication: PSORIASIS
     Dosage: 50 MG, QWK
     Route: 058
     Dates: start: 2014

REACTIONS (24)
  - Diabetes mellitus [Unknown]
  - Visual acuity reduced [Unknown]
  - Peripheral swelling [Unknown]
  - Skin plaque [Unknown]
  - Polyp [Unknown]
  - Fluid retention [Unknown]
  - Feeling abnormal [Unknown]
  - Drug dose omission [Unknown]
  - Liver disorder [Unknown]
  - Groin pain [Unknown]
  - Inappropriate schedule of drug administration [Unknown]
  - Abdominal distension [Unknown]
  - Injection site pain [Unknown]
  - Injection site haemorrhage [Unknown]
  - Skin haemorrhage [Unknown]
  - Pain in extremity [Unknown]
  - Vomiting [Unknown]
  - Muscle spasms [Unknown]
  - Pruritus [Unknown]
  - Staphylococcal infection [Unknown]
  - Pain [Unknown]
  - Scratch [Unknown]
  - Haematemesis [Unknown]
  - Haematochezia [Unknown]

NARRATIVE: CASE EVENT DATE: 201507
